FAERS Safety Report 7744455-3 (Version None)
Quarter: 2011Q3

REPORT INFORMATION
  Report Type: 
  Country: None (occurrence: None)
  Receive Date: 20110912
  Receipt Date: 20110829
  Transmission Date: 20111222
  Serious: Yes (Other)
  Sender: FDA-Public Use
  Company Number: US-BAYER-201027786NA

PATIENT
  Age: 25 Year
  Sex: Female
  Weight: 61.224 kg

DRUGS (4)
  1. SOLODYN [Concomitant]
     Route: 048
  2. MULTI-VITAMINS [Concomitant]
     Route: 048
  3. DROSPIRENONE AND ETHINYL ESTRADIOL [Suspect]
     Indication: ACNE
     Dosage: UNK UNK, UNK
     Route: 048
     Dates: start: 20081001, end: 20090701
  4. YASMIN [Suspect]
     Indication: ACNE
     Dosage: UNK
     Dates: start: 20081001, end: 20090701

REACTIONS (2)
  - PAIN [None]
  - DEEP VEIN THROMBOSIS [None]
